APPROVED DRUG PRODUCT: SPIRONOLACTONE
Active Ingredient: SPIRONOLACTONE
Strength: 100MG
Dosage Form/Route: TABLET;ORAL
Application: A219494 | Product #003 | TE Code: AB
Applicant: GRAVITI PHARMACEUTICALS PRIVATE LTD
Approved: Jan 23, 2025 | RLD: No | RS: No | Type: RX